FAERS Safety Report 7592378-5 (Version None)
Quarter: 2011Q3

REPORT INFORMATION
  Report Type: 
  Country: None (occurrence: None)
  Receive Date: 20110706
  Receipt Date: 20110628
  Transmission Date: 20111222
  Serious: Yes (Other)
  Sender: FDA-Public Use
  Company Number: CH-JNJFOC-20110613088

PATIENT
  Age: 34 Year
  Sex: Male

DRUGS (1)
  1. TOPIRAMATE [Suspect]
     Indication: EPILEPSY
     Route: 048

REACTIONS (4)
  - CHOROIDAL DETACHMENT [None]
  - CILIARY BODY DISORDER [None]
  - ANGLE CLOSURE GLAUCOMA [None]
  - MYOPIA [None]
